FAERS Safety Report 9130328 (Version 1)
Quarter: 2013Q1

REPORT INFORMATION
  Report Type: Spontaneous
  Country: US (occurrence: US)
  Receive Date: 20130228
  Receipt Date: 20130228
  Transmission Date: 20140127
  Serious: No
  Sender: FDA-Public Use
  Company Number: US-009507513-1302USA013508

PATIENT
  Sex: Male

DRUGS (1)
  1. TINACTIN JOCK ITCH POWDER SPRAY [Suspect]
     Indication: PRODUCT USED FOR UNKNOWN INDICATION
     Dosage: UNK, UNKNOWN
     Route: 061

REACTIONS (1)
  - Burning sensation [Recovered/Resolved]
